FAERS Safety Report 17132528 (Version 1)
Quarter: 2019Q4

REPORT INFORMATION
  Report Type: Spontaneous
  Country: US (occurrence: US)
  Receive Date: 20191210
  Receipt Date: 20191210
  Transmission Date: 20200122
  Serious: Yes (Hospitalization, Other)
  Sender: FDA-Public Use
  Company Number: US-TEVA-2019-US-1149966

PATIENT
  Age: 54 Year
  Sex: Female

DRUGS (8)
  1. NORMAL SALINE [Concomitant]
     Active Substance: SODIUM CHLORIDE
     Dosage: NIVOLUMAB WAS DISSOLVED IN 50ML OF SALINE
     Route: 065
     Dates: start: 201812
  2. PREDNISONE. [Suspect]
     Active Substance: PREDNISONE
     Indication: STEROID THERAPY
     Dosage: WITH A 20MG/WEEK REDUCTION IN DOSAGE FOR 4WEEKS, NUMBER OF DOSAGES: 1
     Route: 065
     Dates: start: 201812
  3. IPILIMUMAB [Suspect]
     Active Substance: IPILIMUMAB
     Indication: VAGINAL CANCER
     Dosage: IPILIMUMAB WAS DISSOLVED IN 250ML OF SALINE, NUMBER OF DOSAGES: 1
     Route: 065
     Dates: start: 201812
  4. PREDNISONE. [Suspect]
     Active Substance: PREDNISONE
     Dosage: INITIAL DOSE 120MG WITH 20MG/WEEK REDUCTION IN DOSAGE
     Route: 065
  5. NIVOLUMAB [Suspect]
     Active Substance: NIVOLUMAB
     Indication: METASTATIC MALIGNANT MELANOMA
  6. NORMAL SALINE [Concomitant]
     Active Substance: SODIUM CHLORIDE
     Dosage: IPILIMUMAB WAS DISSOLVED IN 250ML OF SALINE
     Route: 065
     Dates: start: 201812
  7. IPILIMUMAB [Suspect]
     Active Substance: IPILIMUMAB
     Indication: METASTATIC MALIGNANT MELANOMA
  8. NIVOLUMAB [Suspect]
     Active Substance: NIVOLUMAB
     Indication: VAGINAL CANCER
     Dosage: NIVOLUMAB WAS DISSOLVED IN 50ML OF SALINE, NUMBER OF DOSAGES: 1
     Route: 065
     Dates: start: 201812

REACTIONS (13)
  - Dermatitis [Recovered/Resolved]
  - Hyperglycaemia [Unknown]
  - Hepatitis [Unknown]
  - Myocarditis [Unknown]
  - Hypothyroidism [Recovered/Resolved]
  - Headache [Recovered/Resolved]
  - Colitis [Recovered/Resolved]
  - Hypophysitis [Recovered/Resolved]
  - Fatigue [Recovered/Resolved]
  - Hypogonadism [Recovered/Resolved]
  - Pneumonitis [Unknown]
  - Hyponatraemia [Recovered/Resolved]
  - Nephritis [Unknown]

NARRATIVE: CASE EVENT DATE: 20181205
